FAERS Safety Report 8329811-7 (Version None)
Quarter: 2012Q2

REPORT INFORMATION
  Report Type: 
  Country: None (occurrence: None)
  Receive Date: 20120502
  Receipt Date: 20120427
  Transmission Date: 20120825
  Serious: Yes (Hospitalization)
  Sender: FDA-Public Use
  Company Number: DK-ABBOTT-11P-044-0861540-00

PATIENT
  Sex: Female
  Weight: 60 kg

DRUGS (4)
  1. HUMIRA [Suspect]
     Indication: JUVENILE ARTHRITIS
     Dates: start: 20110103, end: 20110802
  2. HUMIRA [Suspect]
  3. METHOTREXATE [Concomitant]
  4. METHOTREXATE [Concomitant]
     Indication: JUVENILE ARTHRITIS
     Route: 048
     Dates: start: 20090203, end: 20110802

REACTIONS (1)
  - HAEMOLYTIC ANAEMIA [None]
